FAERS Safety Report 9404745 (Version 2)
Quarter: 2013Q3

REPORT INFORMATION
  Report Type: Report from Study
  Country: US (occurrence: US)
  Receive Date: 20130717
  Receipt Date: 20130805
  Transmission Date: 20140515
  Serious: Yes (Death)
  Sender: FDA-Public Use
  Company Number: PHEH2013US015035

PATIENT
  Age: 46 Year
  Sex: Female

DRUGS (2)
  1. GLEEVEC [Suspect]
     Indication: LOCAL SWELLING
     Dosage: 400 MG, UNK
     Route: 048
     Dates: start: 20130509
  2. GLEEVEC [Suspect]
     Indication: OFF LABEL USE

REACTIONS (1)
  - Neoplasm malignant [Fatal]
